FAERS Safety Report 13299922 (Version 5)
Quarter: 2017Q3

REPORT INFORMATION
  Report Type: Report from Study
  Country: DE (occurrence: DE)
  Receive Date: 20170306
  Receipt Date: 20170901
  Transmission Date: 20171127
  Serious: Yes (Other)
  Sender: FDA-Public Use
  Company Number: DE-OTSUKA-2017_005226

PATIENT
  Age: 76 Year
  Sex: Male
  Weight: 103 kg

DRUGS (18)
  1. OLMESARTAN [Concomitant]
     Active Substance: OLMESARTAN
     Indication: HYPERTENSION
     Dosage: 40 MG, 1 IN 1 DAY
     Route: 048
  2. TOREM [Concomitant]
     Active Substance: TORSEMIDE
     Dosage: 15 MG, 1 IN 1 DAY
     Route: 048
     Dates: start: 20170308
  3. RAMIPRIL. [Concomitant]
     Active Substance: RAMIPRIL
     Indication: HYPERTENSION
     Dosage: 2.5 MG, 1 IN 1 DAY
     Route: 048
  4. HCT [Concomitant]
     Active Substance: HYDROCHLOROTHIAZIDE
     Indication: HYPERTENSION
     Dosage: 12.5 MG, 1 IN 1 DAY
     Route: 048
     Dates: start: 20170117
  5. RAMIPRIL. [Concomitant]
     Active Substance: RAMIPRIL
     Dosage: 5 MG, 1 IN 1 DAY
     Route: 048
     Dates: start: 20170225
  6. VOCADO [Concomitant]
     Active Substance: AMLODIPINE BESYLATE\OLMESARTAN MEDOXOMIL
     Indication: HYPERTENSION
     Dosage: UNK, 1 IN 1 DAY
     Route: 048
  7. OLMESARTAN [Concomitant]
     Active Substance: OLMESARTAN
     Dosage: 10 MG, 1 IN 1 DAY
     Route: 048
  8. BISOPROLOL [Concomitant]
     Active Substance: BISOPROLOL
     Dosage: 1.25 MG, 1 IN 1 DAY
     Route: 048
     Dates: start: 20170304
  9. DECITABINE. [Suspect]
     Active Substance: DECITABINE
     Indication: ACUTE MYELOID LEUKAEMIA
     Dosage: 43.6 MG, 1 IN 1 DAY
     Route: 042
     Dates: start: 20170120
  10. TOREM [Concomitant]
     Active Substance: TORSEMIDE
     Indication: HYPERTENSION
     Dosage: 5 MG, 1 IN 1 DAY
     Route: 048
  11. BISOPROLOL [Concomitant]
     Active Substance: BISOPROLOL
     Indication: HYPERTENSION
     Dosage: 2.5 MG, 1 IN 1 DAY
     Route: 048
  12. AMLODIPINE [Concomitant]
     Active Substance: AMLODIPINE BESYLATE
     Dosage: 5 MG, 1 IN 1 DAY
     Route: 048
     Dates: start: 20170224
  13. TOREM [Concomitant]
     Active Substance: TORSEMIDE
     Dosage: 10 MG, 1 IN 1 DAY
     Route: 048
  14. SPIRONOLACTONE. [Concomitant]
     Active Substance: SPIRONOLACTONE
     Dosage: 25 MG, 1 IN 1 DAY
     Route: 048
  15. AMLODIPINE [Concomitant]
     Active Substance: AMLODIPINE BESYLATE
     Indication: HYPERTENSION
     Dosage: 10 MG, 1 IN 1 DAY
     Route: 048
  16. PAUSE [Concomitant]
     Indication: HYPERTENSION
     Dosage: UNK
     Route: 065
  17. SPIRONOLACTONE. [Concomitant]
     Active Substance: SPIRONOLACTONE
     Indication: HYPERTENSION
     Dosage: 12.5 MG, 1 IN 1 DAY
     Route: 048
     Dates: start: 20170306
  18. OLMESARTAN [Concomitant]
     Active Substance: OLMESARTAN
     Dosage: 20 MG, 1 IN 1 DAY
     Route: 048

REACTIONS (1)
  - Right ventricular dysfunction [Recovered/Resolved with Sequelae]

NARRATIVE: CASE EVENT DATE: 20170222
